FAERS Safety Report 9620985 (Version 5)
Quarter: 2013Q4

REPORT INFORMATION
  Report Type: Report from Study
  Country: DE (occurrence: DE)
  Receive Date: 20131015
  Receipt Date: 20131226
  Transmission Date: 20140711
  Serious: Yes (Death, Hospitalization, Other)
  Sender: FDA-Public Use
  Company Number: PHHY2013DE112294

PATIENT
  Sex: Female
  Weight: 66 kg

DRUGS (7)
  1. AFINITOR [Suspect]
     Indication: BREAST CANCER METASTATIC
     Dosage: 10 MG, QD
     Route: 048
     Dates: start: 20130313, end: 20130319
  2. AFINITOR [Suspect]
     Dosage: 10 MG, QD
     Route: 048
     Dates: start: 20130326, end: 20130329
  3. AFINITOR [Suspect]
     Dosage: 10 MG, QD
     Route: 048
     Dates: start: 20130508, end: 20130520
  4. AFINITOR [Suspect]
     Dosage: 5 MG, QD
     Route: 048
     Dates: start: 20130521, end: 20131003
  5. EXEMESTANE [Concomitant]
     Indication: BREAST CANCER METASTATIC
     Dosage: 25 MG, QD
     Dates: start: 20130313, end: 20130330
  6. EXEMESTANE [Concomitant]
     Dosage: 25 MG, QD
     Dates: start: 20130402, end: 20131003
  7. SIMVABETA [Concomitant]
     Indication: HYPERCHOLESTEROLAEMIA
     Dosage: UNK
     Dates: start: 20131012

REACTIONS (12)
  - General physical health deterioration [Fatal]
  - Abasia [Fatal]
  - Asthenia [Fatal]
  - Metastases to central nervous system [Fatal]
  - Concomitant disease progression [Fatal]
  - Pneumonia fungal [Fatal]
  - Pneumonia klebsiella [Fatal]
  - Brain oedema [Fatal]
  - Respiratory failure [Fatal]
  - Deep vein thrombosis [Recovered/Resolved]
  - Venous thrombosis [Unknown]
  - Urinary tract infection [Recovered/Resolved]
